FAERS Safety Report 8543041-5 (Version None)
Quarter: 2012Q3

REPORT INFORMATION
  Report Type: 
  Country: None (occurrence: None)
  Receive Date: 20120727
  Receipt Date: 20120719
  Transmission Date: 20120928
  Serious: Yes (Other)
  Sender: FDA-Public Use
  Company Number: US-JNJFOC-20120609817

PATIENT
  Sex: Male
  Weight: 115.67 kg

DRUGS (3)
  1. REMICADE [Suspect]
     Indication: PSORIATIC ARTHROPATHY
     Route: 042
  2. MULTI-VITAMINS [Concomitant]
     Indication: NUTRITIONAL SUPPORT
     Route: 048
  3. REMICADE [Suspect]
     Route: 042
     Dates: start: 20070301

REACTIONS (12)
  - NEPHROLITHIASIS [None]
  - INNER EAR DISORDER [None]
  - BLOOD CHOLESTEROL INCREASED [None]
  - LABYRINTHITIS [None]
  - FLUSHING [None]
  - HIATUS HERNIA [None]
  - ARTHROPATHY [None]
  - SYSTEMIC LUPUS ERYTHEMATOSUS [None]
  - THROMBOSIS [None]
  - TYMPANIC MEMBRANE PERFORATION [None]
  - INFUSION RELATED REACTION [None]
  - PSORIASIS [None]
